FAERS Safety Report 8890627 (Version 1)
Quarter: 2012Q4

REPORT INFORMATION
  Report Type: 
  Country: US (occurrence: US)
  Receive Date: 20121107
  Receipt Date: 20121107
  Transmission Date: 20130627
  Serious: Yes (Other)
  Sender: FDA-Public Use
  Company Number: US-JNJFOC-20121102248

PATIENT
  Sex: Female

DRUGS (2)
  1. TYLENOL ARTHRITIS PAIN ER [Suspect]
     Route: 048
  2. TYLENOL ARTHRITIS PAIN ER [Suspect]
     Indication: PRODUCT USED FOR UNKNOWN INDICATION
     Route: 048
     Dates: start: 20121031

REACTIONS (2)
  - Overdose [Unknown]
  - Vomiting [Not Recovered/Not Resolved]
